FAERS Safety Report 7814280-3 (Version None)
Quarter: 2011Q4

REPORT INFORMATION
  Report Type: 
  Country: None (occurrence: None)
  Receive Date: 20111014
  Receipt Date: 20111011
  Transmission Date: 20120403
  Serious: Yes (Hospitalization, Disabling, Other)
  Sender: FDA-Public Use
  Company Number: JP-PFIZER INC-2011207856

PATIENT
  Age: 79 Year
  Sex: Male
  Weight: 56 kg

DRUGS (7)
  1. CELECOXIB [Suspect]
     Indication: BACK PAIN
     Dosage: UNK
     Route: 048
     Dates: start: 20100804, end: 20100907
  2. ASPIRIN [Concomitant]
     Dosage: UNK
     Route: 065
  3. FERROUS CITRATE [Concomitant]
     Dosage: UNK
     Route: 065
  4. LASIX [Concomitant]
     Route: 065
  5. PETROLEUM [Concomitant]
     Dosage: UNK
     Route: 065
  6. TAMSULOSIN HCL [Concomitant]
     Dosage: UNK
     Route: 065
  7. CERNILTON [Concomitant]
     Dosage: UNK
     Route: 065

REACTIONS (3)
  - DRUG RASH WITH EOSINOPHILIA AND SYSTEMIC SYMPTOMS [None]
  - LIVER DISORDER [None]
  - HUMAN HERPESVIRUS 6 INFECTION [None]
